FAERS Safety Report 5038093-3 (Version None)
Quarter: 2006Q2

REPORT INFORMATION
  Report Type: 
  Country: None (occurrence: None)
  Receive Date: 20060602
  Receipt Date: 20060330
  Transmission Date: 20061013
  Serious: No
  Sender: FDA-Public Use
  Company Number: US200603005869

PATIENT
  Age: 81 Year
  Sex: Male
  Weight: 68 kg

DRUGS (5)
  1. PEMETREXED(PEMETREXED) VIAL [Suspect]
     Indication: NON-SMALL CELL LUNG CANCER
     Dosage: 900 MG
     Dates: start: 20051117
  2. CYANOCOBALAMIN [Concomitant]
  3. FOLIC ACID [Concomitant]
  4. PREDNISONE TAB [Concomitant]
  5. ARANESP [Concomitant]

REACTIONS (1)
  - LACRIMATION INCREASED [None]
